FAERS Safety Report 6727358-2 (Version None)
Quarter: 2010Q2

REPORT INFORMATION
  Report Type: 
  Country: None (occurrence: None)
  Receive Date: 20100517
  Receipt Date: 20100503
  Transmission Date: 20101027
  Serious: Yes (Death, Hospitalization, Other)
  Sender: FDA-Public Use
  Company Number: PHHY2010DE29566

PATIENT
  Age: 70 Year
  Sex: Male

DRUGS (18)
  1. DICLOFENAC [Interacting]
     Indication: OSTEOARTHRITIS
  2. TORASEMIDE [Interacting]
     Indication: HYPERTENSION
     Dosage: 20 MG, BID
     Route: 048
     Dates: start: 20000101
  3. CODEINE SULFATE [Suspect]
     Indication: BRONCHIAL CARCINOMA
     Dosage: 40 GTT, TID
     Route: 048
     Dates: start: 20100101, end: 20100311
  4. FENTANYL [Suspect]
     Indication: PAIN
     Dosage: 25 UG, QD
     Route: 062
     Dates: start: 20091201, end: 20100311
  5. SEVREDOL [Suspect]
     Indication: PAIN
     Dosage: 10 MG, QD
     Route: 048
     Dates: start: 20100101, end: 20100311
  6. ATACAND [Concomitant]
     Indication: CARDIAC FAILURE
     Dosage: UNK
     Dates: start: 20080101
  7. ASPIRIN [Concomitant]
     Indication: CORONARY ARTERY DISEASE
     Dosage: 100 MG, QD
     Route: 048
     Dates: start: 19980101
  8. LOCOL [Concomitant]
     Indication: HYPERLIPIDAEMIA
     Dosage: 80 MG, QD
     Route: 048
     Dates: start: 19980101
  9. NITRO-SPRAY [Concomitant]
     Indication: CORONARY ARTERY DISEASE
     Dosage: 0.8 MG, UNK
     Route: 048
     Dates: start: 19980101
  10. BONDIOL [Concomitant]
     Indication: RENAL OSTEODYSTROPHY
     Dosage: 0.25 UG, UNK
     Route: 048
     Dates: start: 20080101
  11. NEORECORMON [Concomitant]
     Indication: NEPHROGENIC ANAEMIA
     Dosage: 4000 IU, QD
     Route: 058
     Dates: start: 20080101
  12. ALLOPURINOL [Concomitant]
     Indication: RENAL IMPAIRMENT
     Dosage: 300 MG, QD
     Route: 048
     Dates: start: 20080101
  13. LEVOTHYROXINE SODIUM [Concomitant]
     Indication: HYPOTHYROIDISM
     Dosage: 12.5 UG, QD
     Route: 048
  14. BISOPROLOL [Concomitant]
     Indication: CORONARY ARTERY DISEASE
     Dosage: 10 MG, QD
     Route: 048
     Dates: start: 19980101
  15. PANTOZOL [Concomitant]
     Indication: PROPHYLAXIS AGAINST GASTROINTESTINAL ULCER
     Dosage: 40 MG, QD
     Route: 048
     Dates: start: 19980101
  16. ACETYLCYSTEINE [Concomitant]
     Indication: BRONCHIAL CARCINOMA
     Dosage: 200 MG, TID
     Route: 048
     Dates: start: 20090101
  17. DEXAMETHASONE TAB [Concomitant]
     Indication: BRONCHIAL CARCINOMA
     Dosage: 4 MG, TID
     Route: 048
     Dates: start: 20090401
  18. NOVAMINSULFON [Concomitant]
     Indication: PAIN
     Dosage: 40 GTT, TID
     Route: 048
     Dates: start: 20090101

REACTIONS (15)
  - ASPARTATE AMINOTRANSFERASE INCREASED [None]
  - BLOOD PRESSURE DECREASED [None]
  - BLOOD UREA INCREASED [None]
  - C-REACTIVE PROTEIN INCREASED [None]
  - DEATH [None]
  - DRUG INTERACTION [None]
  - FLUID INTAKE REDUCED [None]
  - GAMMA-GLUTAMYLTRANSFERASE INCREASED [None]
  - HEART RATE INCREASED [None]
  - LIPASE DECREASED [None]
  - OVERDOSE [None]
  - QRS AXIS ABNORMAL [None]
  - RENAL FAILURE ACUTE [None]
  - SOMNOLENCE [None]
  - URINARY RETENTION [None]
